FAERS Safety Report 7233773-3 (Version None)
Quarter: 2011Q1

REPORT INFORMATION
  Report Type: 
  Country: None (occurrence: None)
  Receive Date: 20110119
  Receipt Date: 20110108
  Transmission Date: 20110831
  Serious: No
  Sender: FDA-Public Use
  Company Number: US-B.I. PHARMACEUTICALS,INC./RIDGEFIELD-2011-BP-00790BP

PATIENT
  Sex: Female

DRUGS (9)
  1. TOPROL-XL [Concomitant]
     Indication: CARDIAC DISORDER
     Dosage: 25 MG
  2. FISH OIL [Concomitant]
  3. PRADAXA [Suspect]
     Indication: ATRIAL FIBRILLATION
     Dosage: 300 MG
     Route: 048
     Dates: start: 20110106
  4. ELMIRON [Concomitant]
     Indication: CYSTITIS
     Dosage: 100 MG
  5. LIPITOR [Concomitant]
     Indication: CARDIAC DISORDER
     Dosage: 10 MG
  6. BUSPAR [Concomitant]
     Indication: ANXIETY
     Dosage: 10 MG
  7. CALCIUM AD [Concomitant]
     Dosage: 600 MG
  8. NAPROSYN [Concomitant]
     Indication: BLOOD CHOLESTEROL
     Dosage: 500 MG
  9. MULTI-VITAMIN [Concomitant]

REACTIONS (3)
  - PALPITATIONS [None]
  - INSOMNIA [None]
  - ASTHENIA [None]
